FAERS Safety Report 6270588-7 (Version None)
Quarter: 2009Q3

REPORT INFORMATION
  Report Type: 
  Country: None (occurrence: None)
  Receive Date: 20090716
  Receipt Date: 20090707
  Transmission Date: 20100115
  Serious: Yes (Other)
  Sender: FDA-Public Use
  Company Number: SE-JNJFOC-20090704383

PATIENT
  Age: 43 Year
  Sex: Male

DRUGS (1)
  1. KETOCONAZOLE [Suspect]
     Indication: ONYCHOMYCOSIS
     Route: 065

REACTIONS (5)
  - ABDOMINAL PAIN [None]
  - CHOLESTASIS [None]
  - JAUNDICE [None]
  - LIVER TENDERNESS [None]
  - VOMITING [None]
